FAERS Safety Report 5247909-7 (Version None)
Quarter: 2007Q1

REPORT INFORMATION
  Report Type: 
  Country: None (occurrence: None)
  Receive Date: 20070227
  Receipt Date: 20070216
  Transmission Date: 20070707
  Serious: Yes (Hospitalization)
  Sender: FDA-Public Use
  Company Number: US-BRISTOL-MYERS SQUIBB COMPANY-13533146

PATIENT
  Age: 66 Year
  Sex: Female

DRUGS (15)
  1. TEQUIN [Suspect]
     Indication: BRONCHITIS
     Route: 048
     Dates: start: 20020924, end: 20020925
  2. LEVAQUIN [Suspect]
     Indication: BRONCHITIS
     Dates: start: 20020924, end: 20020925
  3. NORVASC [Concomitant]
     Route: 048
  4. ACTOS [Concomitant]
  5. GLUCOVANCE [Concomitant]
  6. SPIRONOLACTONE [Concomitant]
  7. LESCOL XL [Concomitant]
  8. CLONIDINE [Concomitant]
  9. FOSAMAX [Concomitant]
  10. ATENOLOL [Concomitant]
  11. CELEBREX [Concomitant]
  12. PLAVIX [Concomitant]
  13. NITROGLYCERIN [Concomitant]
  14. XALATAN [Concomitant]
  15. VIVARIN [Concomitant]

REACTIONS (2)
  - HYPOGLYCAEMIA [None]
  - TROPONIN INCREASED [None]
